FAERS Safety Report 16822155 (Version 1)
Quarter: 2019Q3

REPORT INFORMATION
  Report Type: Spontaneous
  Country: US (occurrence: US)
  Receive Date: 20190918
  Receipt Date: 20190918
  Transmission Date: 20191005
  Serious: No
  Sender: FDA-Public Use
  Company Number: US-PFIZER INC-2019083602

PATIENT
  Age: 40 Year
  Sex: Female
  Weight: 61.22 kg

DRUGS (3)
  1. VFEND [Suspect]
     Active Substance: VORICONAZOLE
     Dosage: 150 MG, 2X/DAY [TAKE 3 TABLET (150MG TOTAL )BY MOUTH 2(TWO)TIMES A DAY]
     Route: 048
  2. VFEND [Suspect]
     Active Substance: VORICONAZOLE
     Indication: ASPERGILLUS INFECTION
     Dosage: 200 MG, 2X/DAY [1 TABLET (200MG TOTAL )BY MOUTH 2(TWO)TIMES A DAY ,ONE TAB EVERY 12 HOURS]
     Route: 048
  3. VFEND [Suspect]
     Active Substance: VORICONAZOLE
     Dosage: 200 MG, AS NEEDED (200MG, ONE TABLET TWICE A DAY)
     Dates: start: 20190111

REACTIONS (3)
  - Vision blurred [Unknown]
  - Intentional product use issue [Unknown]
  - Rhinitis allergic [Unknown]
